FAERS Safety Report 13487650 (Version 3)
Quarter: 2017Q4

REPORT INFORMATION
  Report Type: Report from Study
  Country: None (occurrence: US)
  Receive Date: 20170426
  Receipt Date: 20171115
  Transmission Date: 20180320
  Serious: Yes (Other)
  Sender: FDA-Public Use
  Company Number: US-ABBVIE-17K-163-1955159-00

PATIENT
  Sex: Male

DRUGS (1)
  1. HUMIRA [Suspect]
     Active Substance: ADALIMUMAB
     Indication: COLITIS ULCERATIVE
     Route: 058
     Dates: start: 20150406

REACTIONS (4)
  - Pruritus generalised [Unknown]
  - Large intestine polyp [Unknown]
  - Precancerous cells present [Unknown]
  - Rash [Unknown]

NARRATIVE: CASE EVENT DATE: 2017
